FAERS Safety Report 4283941-8 (Version None)
Quarter: 2004Q1

REPORT INFORMATION
  Report Type: 
  Country: None (occurrence: None)
  Receive Date: 20040115
  Receipt Date: 20021230
  Transmission Date: 20041129
  Serious: Yes (Death)
  Sender: FDA-Public Use
  Company Number: NSADSS2002047951

PATIENT
  Age: 24 Year
  Sex: Female
  Weight: 49.4421 kg

DRUGS (2)
  1. DOXIL [Suspect]
     Indication: OVARIAN CANCER
     Dosage: 65 MG, INTRAVENOUS DRIP, 75 MG, INTRAVENOUS DRIP
     Route: 041
     Dates: start: 20011207, end: 20011207
  2. DOXIL [Suspect]
     Indication: OVARIAN CANCER
     Dosage: 65 MG, INTRAVENOUS DRIP, 75 MG, INTRAVENOUS DRIP
     Route: 041
     Dates: start: 20011228, end: 20011228

REACTIONS (2)
  - CONDITION AGGRAVATED [None]
  - HAEMOGLOBIN DECREASED [None]
